FAERS Safety Report 6834659-6 (Version None)
Quarter: 2010Q3

REPORT INFORMATION
  Report Type: 
  Country: None (occurrence: None)
  Receive Date: 20100712
  Receipt Date: 20070620
  Transmission Date: 20110219
  Serious: Yes (Other)
  Sender: FDA-Public Use
  Company Number: US-PFIZER INC-2007030539

PATIENT
  Sex: Female
  Weight: 99.8 kg

DRUGS (10)
  1. CHANTIX [Suspect]
     Indication: SMOKING CESSATION THERAPY
     Dates: start: 20070405, end: 20070413
  2. CHANTIX [Suspect]
     Indication: TOBACCO ABUSE
  3. TOPAMAX [Concomitant]
  4. LAMICTAL [Concomitant]
  5. KLONOPIN [Concomitant]
  6. CONCERTA [Concomitant]
  7. SEROQUEL [Concomitant]
  8. FLONASE [Concomitant]
  9. MULTI-VITAMINS [Concomitant]
  10. CLONIDINE [Concomitant]

REACTIONS (3)
  - NIGHTMARE [None]
  - SLEEP DISORDER [None]
  - SUICIDAL IDEATION [None]
